FAERS Safety Report 9921143 (Version 3)
Quarter: 2014Q1

REPORT INFORMATION
  Report Type: Spontaneous
  Country: US (occurrence: US)
  Receive Date: 20140225
  Receipt Date: 20140308
  Transmission Date: 20141002
  Serious: Yes (Hospitalization, Other)
  Sender: FDA-Public Use
  Company Number: US-ROCHE-1353005

PATIENT
  Age: 69 Year
  Sex: Male
  Weight: 89 kg

DRUGS (11)
  1. PEGASYS [Suspect]
     Indication: HEPATITIS C
     Route: 058
     Dates: start: 20131011, end: 20140217
  2. RIBAVIRIN [Suspect]
     Indication: HEPATITIS C
     Route: 048
     Dates: start: 20131011, end: 20140217
  3. TELAPREVIR [Suspect]
     Indication: PRODUCT USED FOR UNKNOWN INDICATION
     Route: 065
  4. ASA [Concomitant]
     Route: 048
  5. ATENOLOL [Concomitant]
     Indication: HYPERTENSION
     Route: 048
  6. FLOMAX (UNITED STATES) [Concomitant]
     Indication: BENIGN PROSTATIC HYPERPLASIA
     Route: 048
  7. PROMACTA [Concomitant]
     Indication: THROMBOCYTOPENIA
     Route: 048
     Dates: start: 20130927, end: 20140217
  8. AMLODIPINE [Concomitant]
     Indication: HYPERTENSION
     Route: 048
  9. FERROUS SULFATE [Concomitant]
     Indication: ANAEMIA
     Route: 048
  10. FINASTERIDE [Concomitant]
     Route: 048
  11. TUSSIONEX (UNITED STATES) [Concomitant]
     Indication: COUGH
     Dosage: PRN
     Route: 065

REACTIONS (6)
  - Dyspnoea [Unknown]
  - Cough [Recovering/Resolving]
  - Bronchial hyperreactivity [Recovering/Resolving]
  - Hypoxia [Recovered/Resolved]
  - Amnesia [Unknown]
  - Confusional state [Unknown]
